FAERS Safety Report 7515601-1 (Version None)
Quarter: 2011Q2

REPORT INFORMATION
  Report Type: 
  Country: None (occurrence: None)
  Receive Date: 20110526
  Receipt Date: 20110526
  Transmission Date: 20111010
  Serious: No
  Sender: FDA-Public Use
  Company Number: None

PATIENT
  Age: 97 Year
  Sex: Male
  Weight: 56.8 kg

DRUGS (2)
  1. MOXIFLOXACIN [Suspect]
     Indication: CONDITION AGGRAVATED
     Dosage: 400 MG ONCE IV
     Route: 042
     Dates: start: 20110523, end: 20110523
  2. MOXIFLOXACIN [Suspect]
     Indication: CHRONIC OBSTRUCTIVE PULMONARY DISEASE
     Dosage: 400 MG ONCE IV
     Route: 042
     Dates: start: 20110523, end: 20110523

REACTIONS (9)
  - GENERALISED OEDEMA [None]
  - BUNDLE BRANCH BLOCK RIGHT [None]
  - PRURITUS [None]
  - URTICARIA [None]
  - CONDITION AGGRAVATED [None]
  - FALL [None]
  - CHRONIC OBSTRUCTIVE PULMONARY DISEASE [None]
  - ELECTROCARDIOGRAM ST-T CHANGE [None]
  - INJECTION SITE STREAKING [None]
